FAERS Safety Report 9147378 (Version 1)
Quarter: 2013Q1

REPORT INFORMATION
  Report Type: Spontaneous
  Country: GB (occurrence: None)
  Receive Date: 20130225
  Receipt Date: 20130225
  Transmission Date: 20140127
  Serious: Yes (Death, Other)
  Sender: FDA-Public Use
  Company Number: 2013-00442

PATIENT
  Age: 9 Month
  Sex: Female
  Weight: 8.5 kg

DRUGS (7)
  1. LEVETIRACETAM [Suspect]
     Indication: EPILEPSY
     Dosage: (120 MG,2 IN 1 D)
     Route: 048
     Dates: start: 20120709, end: 20121128
  2. SODIUM VALPROATE [Suspect]
     Indication: CONVULSION
     Dosage: (140 MG,2 IN 1 D)
     Route: 048
     Dates: start: 20120718, end: 20121128
  3. MIDAZOLAM [Suspect]
     Indication: CONVULSION
     Dosage: 2.5 MG, 2 IN 1 D)
     Route: 002
     Dates: start: 20121128, end: 20121128
  4. PHENYTOIN [Suspect]
     Indication: STATUS EPILEPTICUS
     Route: 042
     Dates: start: 20121128, end: 20121128
  5. DIAZEPAM [Concomitant]
  6. LEVETIRACETAM (KEPPRA) [Concomitant]
  7. PARACETAMOL (UNKNOWN) [Concomitant]

REACTIONS (3)
  - Respiratory acidosis [None]
  - Cardiac arrest [None]
  - Convulsion [None]
